FAERS Safety Report 5795890-4 (Version None)
Quarter: 2008Q2

REPORT INFORMATION
  Report Type: 
  Country: None (occurrence: None)
  Receive Date: 20080626
  Receipt Date: 20080611
  Transmission Date: 20081010
  Serious: Yes (Hospitalization)
  Sender: FDA-Public Use
  Company Number: 2008AL006823

PATIENT
  Age: 89 Year
  Sex: Female
  Weight: 63.5036 kg

DRUGS (3)
  1. DIGOXIN TAB [Suspect]
     Indication: ARRHYTHMIA
     Dosage: 0.125MG DAILY PO
     Route: 048
  2. COUMADIN [Concomitant]
  3. THYROXYNE [Concomitant]

REACTIONS (4)
  - HYPERTENSION [None]
  - OVERDOSE [None]
  - PARAESTHESIA [None]
  - XANTHOPSIA [None]
